FAERS Safety Report 6035204-8 (Version None)
Quarter: 2009Q1

REPORT INFORMATION
  Report Type: 
  Country: None (occurrence: None)
  Receive Date: 20090109
  Receipt Date: 20081016
  Transmission Date: 20090719
  Serious: Yes (Life-Threatening, Hospitalization, Disabling, Other)
  Sender: FDA-Public Use
  Company Number: 2008EU001885

PATIENT
  Sex: Male

DRUGS (3)
  1. PROTOPIC [Suspect]
     Indication: RASH PAPULAR
     Dosage: PRN, TOPICAL
     Route: 061
     Dates: start: 20040101, end: 20050101
  2. BETAMETHASONE VALERATE [Suspect]
     Indication: RASH PAPULAR
     Dosage: BID, TOPICAL
     Route: 061
     Dates: start: 20040101, end: 20050101
  3. CYCLOSPORINE [Concomitant]

REACTIONS (1)
  - SQUAMOUS CELL CARCINOMA [None]
